FAERS Safety Report 6354513-6 (Version None)
Quarter: 2009Q3

REPORT INFORMATION
  Report Type: 
  Country: None (occurrence: None)
  Receive Date: 20090914
  Receipt Date: 20090909
  Transmission Date: 20100115
  Serious: Yes (Other)
  Sender: FDA-Public Use
  Company Number: DE-WYE-G04401309

PATIENT

DRUGS (2)
  1. TORISEL [Suspect]
     Indication: RENAL CANCER METASTATIC
     Route: 042
     Dates: start: 20081101
  2. TORISEL [Suspect]
     Dosage: THERAPY RESTARTED AFTER BREAK OF SEVERAL WEEKS WITH 25 MG PER WEEK
     Route: 042

REACTIONS (2)
  - MASTITIS [None]
  - THROMBOCYTOPENIA [None]
